FAERS Safety Report 5190895-9 (Version None)
Quarter: 2006Q4

REPORT INFORMATION
  Report Type: 
  Country: None (occurrence: None)
  Receive Date: 20061222
  Receipt Date: 20060925
  Transmission Date: 20070319
  Serious: Yes (Hospitalization)
  Sender: FDA-Public Use
  Company Number: US-ELI_LILLY_AND_COMPANY-US200609007326

PATIENT
  Age: 49 Year
  Sex: Female
  Weight: 58.956 kg

DRUGS (3)
  1. METOPROLOL SUCCINATE [Concomitant]
     Dates: start: 20020101
  2. HYDROCHLOROTHIAZIDE [Concomitant]
     Dates: start: 20020101
  3. ZYPREXA [Suspect]
     Indication: DEPRESSION
     Dosage: UNK, UNK
     Route: 065
     Dates: start: 19980701, end: 20040901

REACTIONS (7)
  - BLOOD CHOLESTEROL ABNORMAL [None]
  - BLOOD TRIGLYCERIDES INCREASED [None]
  - DIABETES MELLITUS [None]
  - HYPERTENSION [None]
  - METABOLIC DISORDER [None]
  - VASCULAR BYPASS GRAFT [None]
  - VISION BLURRED [None]
